FAERS Safety Report 9466533 (Version 1)
Quarter: 2013Q3

REPORT INFORMATION
  Report Type: Spontaneous
  Country: US (occurrence: US)
  Receive Date: 20130820
  Receipt Date: 20130820
  Transmission Date: 20140515
  Serious: Yes (Other)
  Sender: FDA-Public Use
  Company Number: US-JNJFOC-20130805922

PATIENT
  Age: 53 Year
  Sex: Female
  Weight: 58.97 kg

DRUGS (1)
  1. XARELTO [Suspect]
     Indication: THROMBOSIS PROPHYLAXIS
     Route: 048
     Dates: start: 2012

REACTIONS (4)
  - Pseudolymphoma [Recovered/Resolved]
  - Tooth socket haemorrhage [Not Recovered/Not Resolved]
  - Toothache [Recovered/Resolved]
  - Fatigue [Not Recovered/Not Resolved]
